FAERS Safety Report 8281477-0 (Version None)
Quarter: 2012Q2

REPORT INFORMATION
  Report Type: 
  Country: None (occurrence: None)
  Receive Date: 20120413
  Receipt Date: 20120411
  Transmission Date: 20120825
  Serious: Yes (Other)
  Sender: FDA-Public Use
  Company Number: US-PFIZER INC-2012090780

PATIENT
  Age: 47 Year
  Sex: Male
  Weight: 88.435 kg

DRUGS (4)
  1. XANAX [Suspect]
     Dosage: 1.5 MG, DAILY
     Route: 048
     Dates: start: 20110101, end: 20120401
  2. XYZAL [Concomitant]
     Indication: HYPERSENSITIVITY
     Dosage: UNK, DAILY
  3. XANAX [Suspect]
     Indication: ANXIETY
     Dosage: 0.5 MG, DAILY
     Route: 048
     Dates: start: 20110101, end: 20110101
  4. XANAX XR [Suspect]
     Indication: ANXIETY
     Dosage: 0.5 MG, DAILY
     Route: 048
     Dates: start: 20120401

REACTIONS (2)
  - HALLUCINATION [None]
  - PARANOIA [None]
